FAERS Safety Report 8364357-1 (Version None)
Quarter: 2012Q2

REPORT INFORMATION
  Report Type: 
  Country: None (occurrence: None)
  Receive Date: 20120516
  Receipt Date: 20120509
  Transmission Date: 20120825
  Serious: Yes (Hospitalization)
  Sender: FDA-Public Use
  Company Number: US-BAYER-2011-014058

PATIENT
  Age: 28 Year
  Sex: Female
  Weight: 104.31 kg

DRUGS (5)
  1. OVCON-35 [Concomitant]
  2. COPPER T [Concomitant]
  3. VITAMIN TAB [Concomitant]
     Route: 048
  4. YAZ [Suspect]
     Indication: GENITAL HAEMORRHAGE
     Dosage: UNK
     Route: 048
     Dates: start: 20090122, end: 20090202
  5. ALBUTEROL [Concomitant]
     Indication: BRONCHITIS
     Dosage: UNK UNK, PRN
     Dates: start: 19800101

REACTIONS (6)
  - DEEP VEIN THROMBOSIS [None]
  - OEDEMA PERIPHERAL [None]
  - PAIN [None]
  - ANXIETY [None]
  - TENSION [None]
  - FEAR [None]
